FAERS Safety Report 11653498 (Version 4)
Quarter: 2016Q1

REPORT INFORMATION
  Report Type: Report from Study
  Country: ES (occurrence: ES)
  Receive Date: 20151022
  Receipt Date: 20160318
  Transmission Date: 20160525
  Serious: Yes (Hospitalization)
  Sender: FDA-Public Use
  Company Number: ES-EISAI MEDICAL RESEARCH-EC-2015-011391

PATIENT
  Age: 61 Year
  Sex: Male

DRUGS (12)
  1. PRAVAFENIX [Concomitant]
  2. CAPTOPRIL. [Concomitant]
     Active Substance: CAPTOPRIL
  3. BALZAK PLUS [Concomitant]
     Active Substance: AMLODIPINE BESYLATE\HYDROCHLOROTHIAZIDE\OLMESARTAN MEDOXOMIL
  4. MASTICAL D [Concomitant]
  5. HIDROFEROL [Concomitant]
     Active Substance: CALCIFEDIOL
  6. DOXAZOSIN [Concomitant]
     Active Substance: DOXAZOSIN\DOXAZOSIN MESYLATE
  7. ENALAPRIL [Concomitant]
     Active Substance: ENALAPRIL
  8. ATENOLOL. [Concomitant]
     Active Substance: ATENOLOL
  9. LENVIMA [Suspect]
     Active Substance: LENVATINIB
     Indication: THYROID CANCER METASTATIC
     Route: 048
     Dates: start: 201507, end: 20151014
  10. EUTIROX [Concomitant]
     Active Substance: LEVOTHYROXINE SODIUM
  11. LENVIMA [Suspect]
     Active Substance: LENVATINIB
     Route: 048
     Dates: start: 20151029, end: 201603
  12. ALOPURINOL [Concomitant]
     Active Substance: ALLOPURINOL

REACTIONS (3)
  - Hypertensive crisis [Recovered/Resolved]
  - Diarrhoea [Recovering/Resolving]
  - Renal failure [Recovering/Resolving]

NARRATIVE: CASE EVENT DATE: 20151014
